FAERS Safety Report 9351400 (Version 3)
Quarter: 2014Q3

REPORT INFORMATION
  Report Type: Spontaneous
  Country: US (occurrence: US)
  Receive Date: 20130617
  Receipt Date: 20140822
  Transmission Date: 20150326
  Serious: Yes (Hospitalization, Disabling, Other)
  Sender: FDA-Public Use
  Company Number: US-009507513-1306USA006665

PATIENT
  Sex: Female
  Weight: 58.96 kg

DRUGS (1)
  1. NUVARING [Suspect]
     Active Substance: ETHINYL ESTRADIOL\ETONOGESTREL
     Indication: CONTRACEPTION
     Dosage: UNK
     Route: 067
     Dates: start: 200408, end: 200410

REACTIONS (11)
  - Deep vein thrombosis [Unknown]
  - Sterilisation [Unknown]
  - Incision site cellulitis [Unknown]
  - Thrombophlebitis superficial [Unknown]
  - Maternal exposure before pregnancy [Recovered/Resolved]
  - Thrombolysis [Unknown]
  - Pulmonary embolism [Unknown]
  - Vena cava filter insertion [Unknown]
  - Urine odour abnormal [Unknown]
  - Emotional distress [Unknown]
  - Hypercoagulation [Unknown]

NARRATIVE: CASE EVENT DATE: 2004
